FAERS Safety Report 5912764-6 (Version None)
Quarter: 2008Q4

REPORT INFORMATION
  Report Type: 
  Country: None (occurrence: None)
  Receive Date: 20081008
  Receipt Date: 20080305
  Transmission Date: 20090506
  Serious: No
  Sender: FDA-Public Use
  Company Number: US-ABBOTT-06P-163-0342783-00

PATIENT
  Sex: Male
  Weight: 27.24 kg

DRUGS (2)
  1. DEPAKOTE [Suspect]
     Indication: CONVULSION
     Route: 048
     Dates: end: 20061201
  2. LEVOTHROID [Concomitant]
     Indication: THYROID DISORDER
     Route: 048

REACTIONS (3)
  - AMMONIA INCREASED [None]
  - LETHARGY [None]
  - VOMITING [None]
